FAERS Safety Report 6825640-1 (Version None)
Quarter: 2010Q3

REPORT INFORMATION
  Report Type: 
  Country: None (occurrence: None)
  Receive Date: 20100709
  Receipt Date: 20100705
  Transmission Date: 20110219
  Serious: Yes (Life-Threatening, Hospitalization)
  Sender: FDA-Public Use
  Company Number: FR-BIOGENIDEC-2009BI040850

PATIENT
  Age: 49 Year
  Sex: Male
  Weight: 67 kg

DRUGS (4)
  1. TYSABRI [Suspect]
     Indication: RELAPSING-REMITTING MULTIPLE SCLEROSIS
     Route: 042
     Dates: start: 20080704, end: 20091105
  2. DITROPAN [Concomitant]
     Indication: BLADDER DISORDER
  3. AMITRIPTYLINE HCL [Concomitant]
     Indication: NEURALGIA
  4. AMITRIPTYLINE HCL [Concomitant]
     Indication: DEPRESSION

REACTIONS (1)
  - GLIOBLASTOMA [None]
